FAERS Safety Report 9710573 (Version 2)
Quarter: 2013Q4

REPORT INFORMATION
  Report Type: Spontaneous
  Country: US (occurrence: US)
  Receive Date: 20131126
  Receipt Date: 20131126
  Transmission Date: 20140711
  Serious: No
  Sender: FDA-Public Use
  Company Number: US-BRISTOL-MYERS SQUIBB COMPANY-18905505

PATIENT
  Age: 73 Year
  Sex: Female
  Weight: 71.65 kg

DRUGS (2)
  1. BYETTA PEN DISPOSABLE [Suspect]
     Indication: DIABETES MELLITUS
     Route: 058
     Dates: start: 20091026
  2. METFORMIN HCL [Suspect]

REACTIONS (3)
  - Overdose [Unknown]
  - Blood glucose increased [Unknown]
  - Product quality issue [Unknown]
